FAERS Safety Report 14580647 (Version 2)
Quarter: 2018Q2

REPORT INFORMATION
  Report Type: Spontaneous
  Country: US (occurrence: US)
  Receive Date: 20180228
  Receipt Date: 20180420
  Transmission Date: 20180711
  Serious: Yes (Hospitalization)
  Sender: FDA-Public Use
  Company Number: US-SUN PHARMACEUTICAL INDUSTRIES LTD-2018US-164361

PATIENT
  Age: 49 Year
  Sex: Male

DRUGS (2)
  1. LOPERAMIDE [Suspect]
     Active Substance: LOPERAMIDE
     Indication: DRUG WITHDRAWAL MAINTENANCE THERAPY
     Dosage: 200 TO 400 MG, DAILY
     Route: 048
  2. DOCUSATE [Concomitant]
     Active Substance: DOCUSATE
     Indication: CONSTIPATION
     Dosage: UNK
     Route: 065

REACTIONS (2)
  - Drug abuse [Recovered/Resolved]
  - Electrocardiogram abnormal [Recovered/Resolved]
